FAERS Safety Report 10683173 (Version 3)
Quarter: 2015Q1

REPORT INFORMATION
  Report Type: Spontaneous
  Country: US (occurrence: US)
  Receive Date: 20141230
  Receipt Date: 20150311
  Transmission Date: 20150720
  Serious: Yes (Disabling)
  Sender: FDA-Public Use
  Company Number: US-009507513-1204USA04494

PATIENT
  Sex: Male
  Weight: 110.4 kg

DRUGS (1)
  1. PROPECIA [Suspect]
     Active Substance: FINASTERIDE
     Indication: ALOPECIA
     Dosage: 1 MG, UNK
     Route: 048
     Dates: start: 2007, end: 20110222

REACTIONS (15)
  - Anxiety [Not Recovered/Not Resolved]
  - Cognitive disorder [Not Recovered/Not Resolved]
  - Fatigue [Unknown]
  - Libido decreased [Not Recovered/Not Resolved]
  - Hypogonadism [Unknown]
  - Cyst [Unknown]
  - Sexual dysfunction [Not Recovered/Not Resolved]
  - Panic attack [Not Recovered/Not Resolved]
  - Erectile dysfunction [Not Recovered/Not Resolved]
  - Depression [Not Recovered/Not Resolved]
  - Ejaculation disorder [Not Recovered/Not Resolved]
  - Ejaculation failure [Not Recovered/Not Resolved]
  - Knee operation [Unknown]
  - Weight loss poor [Unknown]
  - Off label use [Unknown]

NARRATIVE: CASE EVENT DATE: 20090524
